FAERS Safety Report 5737049-2 (Version None)
Quarter: 2008Q2

REPORT INFORMATION
  Report Type: 
  Country: None (occurrence: None)
  Receive Date: 20080512
  Receipt Date: 20080512
  Transmission Date: 20081010
  Serious: Yes (Other)
  Sender: FDA-Public Use
  Company Number: None

PATIENT
  Sex: Female
  Weight: 89.8122 kg

DRUGS (1)
  1. AVALIDE [Suspect]
     Indication: HYPERTENSION
     Dosage: 150/12.5 1 DAILY
     Dates: start: 20080325, end: 20080401

REACTIONS (2)
  - FOREIGN BODY TRAUMA [None]
  - PHARYNGEAL OEDEMA [None]
